FAERS Safety Report 16395513 (Version 1)
Quarter: 2019Q2

REPORT INFORMATION
  Report Type: Spontaneous
  Country: GB (occurrence: GB)
  Receive Date: 20190605
  Receipt Date: 20190605
  Transmission Date: 20190711
  Serious: Yes (Hospitalization)
  Sender: FDA-Public Use
  Company Number: GB-ASTRAZENECA-2019SE78977

PATIENT
  Age: 59 Year
  Sex: Male
  Weight: 97 kg

DRUGS (8)
  1. EXENATIDE. [Suspect]
     Active Substance: EXENATIDE
     Indication: TYPE 2 DIABETES MELLITUS
     Dosage: 2.0MG UNKNOWN
     Route: 030
  2. ROSUVASTATIN. [Concomitant]
     Active Substance: ROSUVASTATIN
  3. AMLODIPINE [Concomitant]
     Active Substance: AMLODIPINE BESYLATE
  4. PROMETHAZINE [Concomitant]
     Active Substance: PROMETHAZINE\PROMETHAZINE HYDROCHLORIDE
  5. SERTRALINE [Concomitant]
     Active Substance: SERTRALINE HYDROCHLORIDE
  6. LYMECYCLINE [Concomitant]
     Active Substance: LYMECYCLINE
  7. RAMIPRIL. [Concomitant]
     Active Substance: RAMIPRIL
  8. MIRTAZAPINE. [Concomitant]
     Active Substance: MIRTAZAPINE

REACTIONS (5)
  - Acute kidney injury [Unknown]
  - Pseudocyst [Unknown]
  - Respiratory failure [Unknown]
  - Pancreatitis acute [Recovering/Resolving]
  - Pneumonia [Unknown]

NARRATIVE: CASE EVENT DATE: 20190419
